FAERS Safety Report 6712073-1 (Version None)
Quarter: 2010Q2

REPORT INFORMATION
  Report Type: 
  Country: None (occurrence: None)
  Receive Date: 20100505
  Receipt Date: 20100426
  Transmission Date: 20101027
  Serious: Yes (Death, Hospitalization, Other)
  Sender: FDA-Public Use
  Company Number: PHHO2009US09381

PATIENT
  Sex: Male

DRUGS (13)
  1. NILOTINIB [Suspect]
     Indication: CHRONIC MYELOID LEUKAEMIA
     Dosage: 400 MG, QD
     Route: 048
     Dates: start: 20090530, end: 20090605
  2. NILOTINIB [Suspect]
     Dosage: 800 MG, QD
     Dates: start: 20090606, end: 20090608
  3. DASATINIB [Suspect]
     Indication: CHRONIC MYELOID LEUKAEMIA
     Dosage: UNK
     Dates: start: 20090625
  4. ALLOPURINOL [Concomitant]
     Dosage: UNK
     Dates: start: 20090107
  5. MEROPENEM [Concomitant]
  6. CANDESARTAN CILEXETIL [Concomitant]
  7. ITRACONAZOLE [Concomitant]
  8. LANSOPRAZOLE [Concomitant]
  9. LACTOMIN [Concomitant]
  10. MOSAPRIDE CITRATE [Concomitant]
  11. CEFEPIME HYDROCHLORIDE [Concomitant]
  12. FUROSEMIDE [Concomitant]
  13. FILGRASTIM [Concomitant]

REACTIONS (10)
  - BLAST CELL COUNT INCREASED [None]
  - BRONCHOPULMONARY ASPERGILLOSIS [None]
  - CHRONIC MYELOID LEUKAEMIA [None]
  - CONCOMITANT DISEASE PROGRESSION [None]
  - NEUTROPHIL COUNT DECREASED [None]
  - PLATELET COUNT DECREASED [None]
  - PLEURAL EFFUSION [None]
  - PYREXIA [None]
  - SEPTIC SHOCK [None]
  - WHITE BLOOD CELL COUNT DECREASED [None]
